FAERS Safety Report 5739137-3 (Version None)
Quarter: 2008Q2

REPORT INFORMATION
  Report Type: 
  Country: None (occurrence: None)
  Receive Date: 20080515
  Receipt Date: 20080513
  Transmission Date: 20081010
  Serious: Yes (Hospitalization)
  Sender: FDA-Public Use
  Company Number: A0727956A

PATIENT
  Age: 52 Year
  Sex: Male
  Weight: 77.3 kg

DRUGS (12)
  1. COREG [Suspect]
     Indication: DRUG USE FOR UNKNOWN INDICATION
     Route: 065
  2. ZOFRAN [Suspect]
     Indication: DRUG USE FOR UNKNOWN INDICATION
     Route: 065
  3. TEMODAR [Suspect]
     Indication: GLIOBLASTOMA MULTIFORME
     Dosage: 145MG PER DAY
     Route: 048
     Dates: start: 20080317, end: 20080428
  4. RADIATION [Suspect]
     Indication: GLIOBLASTOMA MULTIFORME
     Dosage: 2GY CYCLIC
     Route: 061
  5. ZETIA [Suspect]
     Indication: DRUG USE FOR UNKNOWN INDICATION
  6. PREVACID [Suspect]
     Indication: DRUG USE FOR UNKNOWN INDICATION
  7. SYNTHROID [Suspect]
     Indication: DRUG USE FOR UNKNOWN INDICATION
  8. PERCOCET [Suspect]
     Indication: DRUG USE FOR UNKNOWN INDICATION
  9. HYDROXYZINE [Suspect]
     Indication: DRUG USE FOR UNKNOWN INDICATION
  10. CLOTRIMAZOLE [Suspect]
     Indication: DRUG USE FOR UNKNOWN INDICATION
  11. ZOCOR [Suspect]
     Indication: DRUG USE FOR UNKNOWN INDICATION
  12. DILANTIN [Suspect]
     Indication: DRUG USE FOR UNKNOWN INDICATION

REACTIONS (3)
  - ABDOMINAL PAIN [None]
  - HYPERSENSITIVITY [None]
  - RASH PRURITIC [None]
